FAERS Safety Report 5748767-4 (Version None)
Quarter: 2008Q2

REPORT INFORMATION
  Report Type: 
  Country: None (occurrence: None)
  Receive Date: 20080521
  Receipt Date: 20080514
  Transmission Date: 20081010
  Serious: Yes (Hospitalization)
  Sender: FDA-Public Use
  Company Number: 2007-00639

PATIENT
  Age: 52 Year
  Sex: Female
  Weight: 64 kg

DRUGS (5)
  1. VELCADE [Suspect]
     Indication: MULTIPLE MYELOMA
     Dosage: 2.20 MG
     Dates: start: 20061020, end: 20070105
  2. DEXAMETHASONE TAB [Suspect]
     Indication: MULTIPLE MYELOMA
     Dates: start: 20061020, end: 20061229
  3. MELPHALAN(MELPHALAN) VIAL [Suspect]
     Indication: MULTIPLE MYELOMA
     Dates: start: 20070206
  4. AMOXICILLIN TRIHYDRATE [Concomitant]
  5. CIPROFLOXACIN [Concomitant]

REACTIONS (6)
  - ASTHENIA [None]
  - CATHETER SITE CELLULITIS [None]
  - NEUTROPENIA [None]
  - PAIN IN EXTREMITY [None]
  - STEM CELL TRANSPLANT [None]
  - WHITE BLOOD CELL COUNT DECREASED [None]
